FAERS Safety Report 13421961 (Version 3)
Quarter: 2018Q1

REPORT INFORMATION
  Report Type: Spontaneous
  Country: US (occurrence: US)
  Receive Date: 20170410
  Receipt Date: 20180118
  Transmission Date: 20180508
  Serious: No
  Sender: FDA-Public Use
  Company Number: US-PFIZER INC-2017150289

PATIENT
  Age: 66 Year
  Sex: Female

DRUGS (3)
  1. XELJANZ [Suspect]
     Active Substance: TOFACITINIB CITRATE
     Dosage: 5 MG, 2X/DAY
     Route: 048
  2. RASUVO [Concomitant]
     Active Substance: METHOTREXATE SODIUM
     Dosage: UNK
  3. XELJANZ [Suspect]
     Active Substance: TOFACITINIB CITRATE
     Dosage: 5 MG, 2X/DAY
     Dates: start: 20170310

REACTIONS (9)
  - Arthralgia [Recovering/Resolving]
  - Dysstasia [Unknown]
  - Dizziness [Unknown]
  - Depression [Unknown]
  - Malaise [Recovering/Resolving]
  - Nausea [Unknown]
  - Tachycardia [Unknown]
  - Mobility decreased [Recovering/Resolving]
  - Dysgeusia [Unknown]
